FAERS Safety Report 9821155 (Version 1)
Quarter: 2014Q1

REPORT INFORMATION
  Report Type: Spontaneous
  Country: US (occurrence: None)
  Receive Date: 20140115
  Receipt Date: 20140115
  Transmission Date: 20141002
  Serious: No
  Sender: FDA-Public Use
  Company Number: None

PATIENT
  Age: 67 Year
  Sex: Male
  Weight: 70.31 kg

DRUGS (1)
  1. ASPIRIN [Suspect]
     Route: 048

REACTIONS (5)
  - Insomnia [None]
  - Nervousness [None]
  - Tremor [None]
  - Bradyphrenia [None]
  - Product quality issue [None]
